FAERS Safety Report 11050299 (Version 2)
Quarter: 2015Q2

REPORT INFORMATION
  Report Type: Spontaneous
  Country: AR (occurrence: AR)
  Receive Date: 20150421
  Receipt Date: 20150514
  Transmission Date: 20150821
  Serious: Yes (Other)
  Sender: FDA-Public Use
  Company Number: AR-ALEXION-A201501270

PATIENT

DRUGS (1)
  1. SOLIRIS [Suspect]
     Active Substance: ECULIZUMAB
     Indication: HAEMOLYTIC URAEMIC SYNDROME
     Dosage: 900 MG, QW
     Route: 042
     Dates: start: 20150325

REACTIONS (6)
  - Retinal vasculitis [Recovering/Resolving]
  - Intracranial pressure increased [Recovered/Resolved]
  - Vision blurred [Not Recovered/Not Resolved]
  - Systemic lupus erythematosus [Unknown]
  - Collagen disorder [Unknown]
  - Brain oedema [Recovered/Resolved]

NARRATIVE: CASE EVENT DATE: 20150401
